FAERS Safety Report 5754000-X (Version None)
Quarter: 2008Q2

REPORT INFORMATION
  Report Type: 
  Country: None (occurrence: None)
  Receive Date: 20080527
  Receipt Date: 20080527
  Transmission Date: 20081010
  Serious: No
  Sender: FDA-Public Use
  Company Number: None

PATIENT
  Sex: Male
  Weight: 81.6475 kg

DRUGS (2)
  1. LEVAQUIN [Suspect]
     Indication: BRONCHITIS
     Dosage: 1 TABLET DAILY FOR TEN DAYS PO
     Route: 048
     Dates: start: 20080215, end: 20080222
  2. LEVAQUIN [Suspect]
     Indication: SINUSITIS
     Dosage: 1 TABLET DAILY FOR TEN DAYS PO
     Route: 048
     Dates: start: 20080215, end: 20080222

REACTIONS (2)
  - TENDON DISORDER [None]
  - TENDON RUPTURE [None]
